FAERS Safety Report 20187417 (Version 4)
Quarter: 2022Q1

REPORT INFORMATION
  Report Type: Spontaneous
  Country: JP (occurrence: JP)
  Receive Date: 20211215
  Receipt Date: 20220210
  Transmission Date: 20220423
  Serious: Yes (Hospitalization, Other)
  Sender: FDA-Public Use
  Company Number: JP-NOVARTISPH-NVSJ2021JP020162

PATIENT
  Age: 11 Year
  Sex: Male
  Weight: 48.6 kg

DRUGS (19)
  1. NEORAL [Suspect]
     Active Substance: CYCLOSPORINE
     Indication: Still^s disease
     Dosage: 100 MG
     Route: 048
     Dates: start: 20181110
  2. ILARIS [Concomitant]
     Active Substance: CANAKINUMAB
     Indication: Still^s disease
     Dosage: 150 MG
     Route: 058
     Dates: start: 20201008
  3. ILARIS [Concomitant]
     Active Substance: CANAKINUMAB
     Dosage: 150 MG
     Route: 058
     Dates: start: 20201105
  4. ILARIS [Concomitant]
     Active Substance: CANAKINUMAB
     Dosage: 150 MG
     Route: 058
     Dates: start: 20201203
  5. ILARIS [Concomitant]
     Active Substance: CANAKINUMAB
     Dosage: 150 MG
     Route: 058
     Dates: start: 20021228
  6. ILARIS [Concomitant]
     Active Substance: CANAKINUMAB
     Dosage: 150 MG
     Route: 058
     Dates: start: 20210127
  7. ILARIS [Concomitant]
     Active Substance: CANAKINUMAB
     Dosage: 150 MG
     Route: 058
     Dates: start: 20210225
  8. ILARIS [Concomitant]
     Active Substance: CANAKINUMAB
     Dosage: 150 MG
     Route: 058
     Dates: start: 20210325
  9. ILARIS [Concomitant]
     Active Substance: CANAKINUMAB
     Dosage: 150 MG
     Route: 058
     Dates: start: 20210422
  10. ILARIS [Concomitant]
     Active Substance: CANAKINUMAB
     Dosage: 150 MG
     Route: 058
     Dates: start: 20210520
  11. ILARIS [Concomitant]
     Active Substance: CANAKINUMAB
     Dosage: 150 MG
     Route: 058
     Dates: start: 20210616
  12. ILARIS [Concomitant]
     Active Substance: CANAKINUMAB
     Dosage: 150 MG
     Route: 058
     Dates: start: 20210715
  13. ILARIS [Concomitant]
     Active Substance: CANAKINUMAB
     Dosage: 150 MG
     Route: 058
     Dates: start: 20210812
  14. ILARIS [Concomitant]
     Active Substance: CANAKINUMAB
     Dosage: 150 MG
     Route: 058
     Dates: start: 20210924
  15. METHYLPREDNISOLONE [Concomitant]
     Active Substance: METHYLPREDNISOLONE
     Indication: Still^s disease
     Dosage: 1000 MG
     Route: 065
     Dates: start: 20210914, end: 20210916
  16. BONALON [Concomitant]
     Active Substance: ALENDRONATE SODIUM
     Indication: Product used for unknown indication
     Dosage: 17.5 MG
     Route: 048
  17. ACTEMRA [Concomitant]
     Active Substance: TOCILIZUMAB
     Indication: Still^s disease
     Dosage: 320 MG
     Route: 065
     Dates: start: 20170711, end: 20200207
  18. ACTEMRA [Concomitant]
     Active Substance: TOCILIZUMAB
     Dosage: 400 MG
     Route: 065
     Dates: start: 20200219, end: 20200918
  19. COLCHICINE [Concomitant]
     Active Substance: COLCHICINE
     Indication: Still^s disease
     Dosage: 1 MG
     Route: 048
     Dates: start: 20180608, end: 20191111

REACTIONS (4)
  - Still^s disease [Recovered/Resolved]
  - Disease recurrence [Recovered/Resolved]
  - Drug level decreased [Unknown]
  - Product use in unapproved indication [Unknown]

NARRATIVE: CASE EVENT DATE: 20181110
